FAERS Safety Report 17390962 (Version 2)
Quarter: 2020Q1

REPORT INFORMATION
  Report Type: Report from Study
  Country: US (occurrence: US)
  Receive Date: 20200207
  Receipt Date: 20200213
  Transmission Date: 20200409
  Serious: Yes (Death, Hospitalization)
  Sender: FDA-Public Use
  Company Number: US-ROCHE-2539109

PATIENT
  Age: 77 Year
  Sex: Male
  Weight: 92.7 kg

DRUGS (3)
  1. ATEZOLIZUMAB. [Suspect]
     Active Substance: ATEZOLIZUMAB
     Indication: CHRONIC MYELOMONOCYTIC LEUKAEMIA
     Dosage: ON DAY 8 AND DAY 22
     Route: 042
     Dates: start: 20200117
  2. GUADECITABINE [Suspect]
     Active Substance: GUADECITABINE
     Indication: CHRONIC MYELOMONOCYTIC LEUKAEMIA
     Dosage: ON DAY 1 AND DAY 5
     Route: 058
     Dates: start: 20200114
  3. DECITABINE. [Concomitant]
     Active Substance: DECITABINE
     Route: 058
     Dates: start: 201806

REACTIONS (5)
  - Death [Fatal]
  - Pneumonia [Unknown]
  - Neutropenia [Unknown]
  - Oropharyngeal pain [Unknown]
  - Vomiting [Unknown]

NARRATIVE: CASE EVENT DATE: 20200124
